FAERS Safety Report 20111657 (Version 1)
Quarter: 2021Q4

REPORT INFORMATION
  Report Type: Spontaneous
  Country: DE (occurrence: DE)
  Receive Date: 20211125
  Receipt Date: 20211125
  Transmission Date: 20220303
  Serious: Yes (Congenital Anomaly)
  Sender: FDA-Public Use
  Company Number: DE-EMBRYOTOX-202009082

PATIENT
  Age: 0 Year

DRUGS (6)
  1. LAMOTRIGINE [Suspect]
     Active Substance: LAMOTRIGINE
     Indication: Epilepsy
     Dosage: 400 MILLIGRAM DAILY; DOSAGE INCREASED FROM WEEK 10 2 SEPARATED DOSES , ADDITIONAL INFO :0. - 23.3. G
     Route: 064
     Dates: start: 20200612, end: 20201123
  2. ACETAMINOPHEN [Concomitant]
     Active Substance: ACETAMINOPHEN
     Indication: Pain
     Dosage: 500 [MG / D (IF REQUIRED)] / IF REQUIRED , ADDITIONAL INFO : TRIMESTER: UNKNOWN TRIMESTER
     Route: 064
  3. Folsare AbZ [Concomitant]
     Indication: Prophylaxis of neural tube defect
     Dosage: 5 [MG / D (UP TO 0.8 MG / D)] , ADDITIONAL INFO : 0. - 23. GESTATIONAL WEEK
     Route: 064
  4. LEVOTHYROXINE SODIUM [Concomitant]
     Active Substance: LEVOTHYROXINE SODIUM
     Indication: Autoimmune thyroiditis
     Dosage: 100 MICROGRAM DAILY; ADDITIONAL INFO : 0. - 23.3. GESTATIONAL WEEK , L-THYROXIN 100 HENNING
     Route: 064
     Dates: start: 20200612, end: 20201123
  5. CETIRIZINE [Concomitant]
     Active Substance: CETIRIZINE HYDROCHLORIDE
     Indication: Rhinitis allergic
     Dosage: 10 MILLIGRAM DAILY; ADDITIONAL INFO : 0. - 23.3. GESTATIONAL WEEK
     Route: 064
     Dates: start: 20200612, end: 20201123
  6. IBUPROFEN [Concomitant]
     Active Substance: IBUPROFEN
     Indication: Pain
     Dosage: 400 [MG / D (IF REQUIRED)] / IF REQUIRED , ADDITIONAL INFO : 0. - 6. GESTATIONAL WEEK
     Route: 064

REACTIONS (2)
  - Spina bifida [Not Recovered/Not Resolved]
  - Foetal exposure during pregnancy [Unknown]

NARRATIVE: CASE EVENT DATE: 20200612
